FAERS Safety Report 8905703 (Version 1)
Quarter: 2012Q4

REPORT INFORMATION
  Report Type: 
  Country: US (occurrence: US)
  Receive Date: 20121111
  Receipt Date: 20121111
  Transmission Date: 20130627
  Serious: Yes (Other)
  Sender: FDA-Public Use
  Company Number: PHEH2012US022170

PATIENT
  Sex: Male
  Weight: 81.63 kg

DRUGS (1)
  1. ZOMETA [Suspect]
     Dates: start: 200810, end: 201107

REACTIONS (1)
  - Osteonecrosis of jaw [Unknown]
